FAERS Safety Report 12119994 (Version 1)
Quarter: 2016Q1

REPORT INFORMATION
  Report Type: Spontaneous
  Country: MX (occurrence: MX)
  Receive Date: 20160226
  Receipt Date: 20160226
  Transmission Date: 20160526
  Serious: Yes (Hospitalization)
  Sender: FDA-Public Use
  Company Number: MX-CELGENE-MEX-2016024111

PATIENT
  Age: 54 Year
  Sex: Male

DRUGS (2)
  1. VIDAZA [Suspect]
     Active Substance: AZACITIDINE
     Indication: MYELODYSPLASTIC SYNDROME
     Dosage: 130-100MG
     Route: 065
     Dates: start: 20160130
  2. INSULIN [Concomitant]
     Active Substance: INSULIN NOS
     Indication: TYPE 2 DIABETES MELLITUS
     Route: 065

REACTIONS (4)
  - Subdural haemorrhage [Recovering/Resolving]
  - Escherichia bacteraemia [Unknown]
  - Neutropenia [Unknown]
  - Thrombocytopenia [Unknown]
